FAERS Safety Report 5426880-9 (Version None)
Quarter: 2007Q3

REPORT INFORMATION
  Report Type: 
  Country: None (occurrence: None)
  Receive Date: 20070827
  Receipt Date: 20070801
  Transmission Date: 20080115
  Serious: No
  Sender: FDA-Public Use
  Company Number: US-BOEHRINGER INGELHEIM PHARMACEUTICALS, INC.-2007-BP-17623BP

PATIENT
  Age: 9 Year
  Sex: Male

DRUGS (7)
  1. FLOMAX [Suspect]
     Indication: BLADDER SPASM
     Dates: start: 20070704, end: 20070716
  2. FLOMAX [Suspect]
     Indication: BLADDER DISCOMFORT
  3. TOPAMAX [Concomitant]
     Indication: CONVULSION
  4. ZYRTEC [Concomitant]
     Indication: MULTIPLE ALLERGIES
  5. LACTOBACILLUS [Concomitant]
     Indication: CLOSTRIDIAL INFECTION
  6. NALTREXONE [Concomitant]
     Indication: ABNORMAL BEHAVIOUR
  7. CULTURELLE [Concomitant]

REACTIONS (2)
  - ABNORMAL FAECES [None]
  - DIARRHOEA [None]
